FAERS Safety Report 25462013 (Version 1)
Quarter: 2025Q2

REPORT INFORMATION
  Report Type: Report from Study
  Country: CA (occurrence: CA)
  Receive Date: 20250620
  Receipt Date: 20250620
  Transmission Date: 20250716
  Serious: Yes (Death)
  Sender: MYLAN
  Company Number: CA-MYLANLABS-2025M1032047

PATIENT
  Age: 72 Year
  Sex: Male

DRUGS (10)
  1. CLOZAPINE [Suspect]
     Active Substance: CLOZAPINE
     Indication: Schizophrenia
  2. SALINE [Concomitant]
     Active Substance: SODIUM CHLORIDE
  3. COTRIMOXAZOLE [Concomitant]
     Active Substance: SULFAMETHOXAZOLE\TRIMETHOPRIM
  4. ACETYLCYSTEINE [Concomitant]
     Active Substance: ACETYLCYSTEINE
  5. EPINEPHRINE [Concomitant]
     Active Substance: EPINEPHRINE
  6. TOBRAMYCIN [Concomitant]
     Active Substance: TOBRAMYCIN
  7. VALPROATE [Concomitant]
     Active Substance: VALPROIC ACID
  8. HEPARIN [Concomitant]
     Active Substance: HEPARIN SODIUM
  9. HALDOL [Concomitant]
     Active Substance: HALOPERIDOL
     Indication: Agitation
  10. LACTULOSE [Concomitant]
     Active Substance: LACTULOSE

REACTIONS (3)
  - Hypercalcaemia [Fatal]
  - Respiratory disorder [Fatal]
  - Drug ineffective [Unknown]

NARRATIVE: CASE EVENT DATE: 20250301
